FAERS Safety Report 24547503 (Version 1)
Quarter: 2024Q4

REPORT INFORMATION
  Report Type: Spontaneous
  Country: US (occurrence: US)
  Receive Date: 20241025
  Receipt Date: 20241025
  Transmission Date: 20250115
  Serious: No
  Sender: DR REDDYS
  Company Number: US-DRL-USA-SPO/USA/24/0015346

PATIENT
  Age: 80 Year
  Sex: Male

DRUGS (1)
  1. FLUOROURACIL [Suspect]
     Active Substance: FLUOROURACIL
     Indication: Skin exfoliation
     Dosage: QUANTITY: 40 G, SERIAL NUMBER: RAEG7VBD4FJP
     Route: 065
     Dates: start: 20241007, end: 20241011

REACTIONS (2)
  - Rash erythematous [Unknown]
  - Acne [Unknown]
